FAERS Safety Report 5497623-8 (Version None)
Quarter: 2007Q4

REPORT INFORMATION
  Report Type: 
  Country: None (occurrence: None)
  Receive Date: 20071025
  Receipt Date: 20061219
  Transmission Date: 20080405
  Serious: No
  Sender: FDA-Public Use
  Company Number: A0632115A

PATIENT
  Age: 74 Year
  Sex: Female

DRUGS (5)
  1. ADVAIR DISKUS 100/50 [Suspect]
     Route: 055
     Dates: start: 20060301
  2. SEREVENT [Suspect]
     Route: 055
  3. TOPROL-XL [Concomitant]
  4. LANOXIN [Concomitant]
  5. ALTACE [Concomitant]

REACTIONS (3)
  - DRY MOUTH [None]
  - DYSPNOEA [None]
  - EXPIRED DRUG ADMINISTERED [None]
